FAERS Safety Report 9580011 (Version 1)
Quarter: 2013Q3

REPORT INFORMATION
  Report Type: Spontaneous
  Country: US (occurrence: None)
  Receive Date: 20130916
  Receipt Date: 20130916
  Transmission Date: 20140515
  Serious: Yes (Other)
  Sender: FDA-Public Use
  Company Number: JPI-P-023429

PATIENT
  Age: 28 Year
  Sex: Female
  Weight: 79.38 kg

DRUGS (5)
  1. XYREM [Suspect]
     Indication: CATAPLEXY
     Route: 048
     Dates: start: 20120614, end: 2012
  2. XYREM [Suspect]
     Indication: SOMNOLENCE
     Route: 048
     Dates: start: 20120614, end: 2012
  3. MODAFINIL [Concomitant]
  4. DULOXETINE HYDROCHLORIDE [Concomitant]
  5. ORAL CONTRACEPTIVE (PILL) [Concomitant]

REACTIONS (3)
  - Blood pressure increased [None]
  - Seborrhoea [None]
  - Heart rate increased [None]
